FAERS Safety Report 9374463 (Version 1)
Quarter: 2013Q2

REPORT INFORMATION
  Report Type: Report from Study
  Country: FR (occurrence: FR)
  Receive Date: 20130628
  Receipt Date: 20130628
  Transmission Date: 20140414
  Serious: Yes (Hospitalization, Other)
  Sender: FDA-Public Use
  Company Number: FR-ROCHE-1036137

PATIENT
  Age: 24 Year
  Sex: Female
  Weight: 64 kg

DRUGS (21)
  1. TOCILIZUMAB [Suspect]
     Indication: RHEUMATOID ARTHRITIS
     Dosage: 8 MG/KG (560 MG)
     Route: 042
     Dates: start: 20101203
  2. TOCILIZUMAB [Suspect]
     Route: 042
     Dates: start: 20101229
  3. TOCILIZUMAB [Suspect]
     Route: 042
     Dates: start: 20110225
  4. TOCILIZUMAB [Suspect]
     Route: 042
     Dates: start: 20110329
  5. TOCILIZUMAB [Suspect]
     Route: 042
     Dates: start: 20110426
  6. TOCILIZUMAB [Suspect]
     Route: 042
     Dates: start: 20110527
  7. TOCILIZUMAB [Suspect]
     Route: 042
     Dates: start: 20110628
  8. TOCILIZUMAB [Suspect]
     Route: 042
     Dates: start: 20110726
  9. TOCILIZUMAB [Suspect]
     Route: 042
     Dates: start: 20110830
  10. TOCILIZUMAB [Suspect]
     Route: 042
     Dates: start: 20120803
  11. TOCILIZUMAB [Suspect]
     Route: 042
     Dates: start: 20120830
  12. TOCILIZUMAB [Suspect]
     Route: 042
     Dates: start: 20120927
  13. TOCILIZUMAB [Suspect]
     Route: 042
     Dates: start: 20121026
  14. TOCILIZUMAB [Suspect]
     Route: 042
     Dates: start: 20121127
  15. SPECIAFOLDINE [Concomitant]
     Route: 065
  16. METOJECT [Concomitant]
     Route: 065
     Dates: start: 201008
  17. METOJECT [Concomitant]
     Route: 065
     Dates: start: 201011, end: 20110628
  18. CORTANCYL [Concomitant]
     Indication: RHEUMATOID ARTHRITIS
     Route: 065
     Dates: start: 20090519
  19. METHOTREXATE [Concomitant]
     Route: 065
  20. LEVOTHYROX [Concomitant]
     Route: 065
  21. CERTOLIZUMAB [Concomitant]

REACTIONS (6)
  - Premature delivery [Unknown]
  - Rheumatoid arthritis [Recovered/Resolved]
  - Vomiting [Recovered/Resolved]
  - Weight decreased [Recovered/Resolved]
  - Gestational diabetes [Unknown]
  - Exposure during pregnancy [Unknown]
